FAERS Safety Report 16791132 (Version 1)
Quarter: 2019Q3

REPORT INFORMATION
  Report Type: Spontaneous
  Country: FI (occurrence: FI)
  Receive Date: 20190910
  Receipt Date: 20190910
  Transmission Date: 20191005
  Serious: Yes (Hospitalization)
  Sender: FDA-Public Use
  Company Number: FI-MYLANLABS-2019M1083870

PATIENT
  Age: 24 Year
  Sex: Male

DRUGS (11)
  1. KETIPINOR [Concomitant]
     Active Substance: QUETIAPINE FUMARATE
     Dosage: AS NECESSARY
     Route: 048
  2. FLIXOTIDE [Concomitant]
     Active Substance: FLUTICASONE PROPIONATE
     Dosage: 500 MICROGRAM, QD
     Route: 048
  3. NEBIDO [Concomitant]
     Active Substance: TESTOSTERONE UNDECANOATE
     Route: 030
  4. PROPRAL [Concomitant]
     Dosage: 10 MILLIGRAM, QD
     Route: 048
  5. LITO [Concomitant]
     Active Substance: LITHIUM CARBONATE
     Dosage: 900 MILLIGRAM, QD
     Route: 048
  6. TRUXAL                             /00012102/ [Concomitant]
     Active Substance: CHLORPROTHIXENE
     Dosage: AS NECESSARY
     Route: 048
  7. TRUXAL                             /00012102/ [Concomitant]
     Active Substance: CHLORPROTHIXENE
     Dosage: 450 MILLIGRAM, QD
     Route: 048
  8. ORFIRIL [Concomitant]
     Active Substance: VALPROATE SODIUM
     Dosage: 1000 MILLIGRAM, QD
     Route: 048
  9. DIVISUN [Concomitant]
     Active Substance: CHOLECALCIFEROL
     Dosage: 800 INTERNATIONAL UNIT, QD
     Route: 048
  10. LEPONEX [Suspect]
     Active Substance: CLOZAPINE
     Indication: PSYCHOTIC DISORDER
     Dosage: 150 MILLIGRAM, QD
     Route: 048
     Dates: start: 20181221, end: 20190103
  11. PRATSIOL [Concomitant]
     Active Substance: PRAZOSIN HYDROCHLORIDE
     Dosage: 0.5 MILLIGRAM, QD
     Route: 048

REACTIONS (2)
  - Eosinophilic pneumonia [Not Recovered/Not Resolved]
  - Myocarditis [Not Recovered/Not Resolved]

NARRATIVE: CASE EVENT DATE: 20181225
